FAERS Safety Report 7464641-X (Version None)
Quarter: 2011Q2

REPORT INFORMATION
  Report Type: 
  Country: None (occurrence: None)
  Receive Date: 20110509
  Receipt Date: 20110325
  Transmission Date: 20111010
  Serious: Yes (Hospitalization)
  Sender: FDA-Public Use
  Company Number: US-BAYER-201037320NA

PATIENT
  Age: 38 Year
  Sex: Female
  Weight: 61 kg

DRUGS (4)
  1. DROSPIRENONE AND ETHINYL ESTRADIOL [Suspect]
     Indication: PRODUCT USED FOR UNKNOWN INDICATION
     Dosage: UNK
     Route: 048
     Dates: start: 20090701, end: 20091201
  2. LEVAQUIN [Concomitant]
     Dosage: 750 MG, UNK
  3. TRAMADOL [Concomitant]
     Dosage: 20 MG, UNK
     Dates: start: 20090101
  4. OXYCODONE HCL AND ACETAMINOPHEN [Concomitant]
     Dosage: 5 MG, UNK
     Dates: end: 20090101

REACTIONS (1)
  - PULMONARY EMBOLISM [None]
